FAERS Safety Report 10638206 (Version 1)
Quarter: 2014Q4

REPORT INFORMATION
  Report Type: Spontaneous
  Country: US (occurrence: None)
  Receive Date: 20141121
  Receipt Date: 20141121
  Transmission Date: 20150529
  Serious: No
  Sender: FDA-Public Use
  Company Number: 163-10004-14080850

PATIENT
  Age: 85 Year
  Sex: Male

DRUGS (12)
  1. TOPICORT (DESOXIMETASONE) (SPRAY (NOT INHALATION)) [Concomitant]
  2. IRBESARTAN (IRBESARTAN) (TABLETS) [Concomitant]
  3. STELARA [Suspect]
     Active Substance: USTEKINUMAB
     Indication: PSORIATIC ARTHROPATHY
  4. ASPIRIN (ACETYLSALICYLIC ACID) (TABLETS) [Concomitant]
  5. MIRALAX (MACROGOL) (UNKNOWN) [Concomitant]
  6. AMLODIPINE (AMLODIPINE) (TABLETS) [Concomitant]
  7. OTEZLA [Suspect]
     Active Substance: APREMILAST
     Indication: PSORIATIC ARTHROPATHY
     Dosage: 60 MG, TITRATION, PO
     Route: 048
     Dates: start: 20140721
  8. METFORMIN (METFORMIN) (TABLETS) [Concomitant]
  9. LUXIQ [Concomitant]
     Active Substance: BETAMETHASONE VALERATE
  10. GABAPENTIN (GABAPENTIN) (CAPSULES) [Concomitant]
  11. LOVASTATIN (LOVASTATIN) (TABLETS) [Concomitant]
  12. VIMOVO (VIMOVO) (TABLETS) [Concomitant]

REACTIONS (1)
  - Fatigue [None]

NARRATIVE: CASE EVENT DATE: 20140728
